FAERS Safety Report 9894066 (Version 1)
Quarter: 2014Q1

REPORT INFORMATION
  Report Type: Spontaneous
  Country: US (occurrence: US)
  Receive Date: 20140213
  Receipt Date: 20140213
  Transmission Date: 20141002
  Serious: No
  Sender: FDA-Public Use
  Company Number: US-PFIZER INC-2014040764

PATIENT
  Age: 70 Year
  Sex: Male
  Weight: 95.24 kg

DRUGS (2)
  1. GABAPENTIN [Suspect]
     Indication: NEUROPATHY PERIPHERAL
     Dosage: 100 MG, 3X/DAY
     Dates: start: 201308, end: 2013
  2. JANTOVEN [Concomitant]
     Indication: FACTOR V LEIDEN MUTATION
     Dosage: 3 MG, DAILY
     Route: 048

REACTIONS (3)
  - Rash [Unknown]
  - Glossodynia [Unknown]
  - Drug intolerance [Unknown]
